FAERS Safety Report 14370571 (Version 4)
Quarter: 2019Q1

REPORT INFORMATION
  Report Type: Spontaneous
  Country: US (occurrence: US)
  Receive Date: 20180110
  Receipt Date: 20190226
  Transmission Date: 20190417
  Serious: Yes (Hospitalization, Other)
  Sender: FDA-Public Use
  Company Number: US-PFIZER INC-2018005077

PATIENT
  Age: 63 Year
  Sex: Male
  Weight: 72.57 kg

DRUGS (4)
  1. RAPAMUNE [Suspect]
     Active Substance: SIROLIMUS
     Dosage: 1 MG, ONCE A DAY
     Dates: start: 201601, end: 201709
  2. RAPAMUNE [Suspect]
     Active Substance: SIROLIMUS
     Indication: IMMUNE SYSTEM DISORDER
     Dosage: 1 MG, ONCE A DAY
     Dates: start: 2014
  3. RAPAMUNE [Suspect]
     Active Substance: SIROLIMUS
     Indication: LIVER TRANSPLANT
     Dosage: 1 MG, 1X/DAY
     Route: 048
     Dates: start: 2015
  4. RAPAMUNE [Suspect]
     Active Substance: SIROLIMUS
     Dosage: 1 MG, ONCE A DAY

REACTIONS (6)
  - Bronchiectasis [Not Recovered/Not Resolved]
  - Product use in unapproved indication [Unknown]
  - Pneumonia [Recovered/Resolved]
  - Drug level increased [Unknown]
  - Pneumonia pseudomonal [Recovered/Resolved]
  - Protein urine present [Recovering/Resolving]

NARRATIVE: CASE EVENT DATE: 2014
